FAERS Safety Report 15322046 (Version 1)
Quarter: 2018Q3

REPORT INFORMATION
  Report Type: Spontaneous
  Country: FR (occurrence: FR)
  Receive Date: 20180827
  Receipt Date: 20180827
  Transmission Date: 20181010
  Serious: Yes (Hospitalization)
  Sender: FDA-Public Use
  Company Number: FR-PFIZER INC-2018337853

PATIENT
  Age: 85 Year
  Sex: Male
  Weight: 58 kg

DRUGS (4)
  1. DALACINE [Suspect]
     Active Substance: CLINDAMYCIN
     Indication: INFECTIVE TENOSYNOVITIS
     Dosage: 1800 MG, DAILY
     Route: 048
     Dates: start: 20180709, end: 20180710
  2. PANTOPRAZOLE [Concomitant]
     Active Substance: PANTOPRAZOLE
     Dosage: 40 MG, DAILY
     Route: 048
  3. PYOSTACINE [Suspect]
     Active Substance: PRISTINAMYCIN
     Indication: INFECTIVE TENOSYNOVITIS
     Dosage: 3000 MG, DAILY
     Route: 048
     Dates: start: 20180706, end: 20180709
  4. CALCIPARINE [Concomitant]
     Active Substance: HEPARIN CALCIUM
     Dosage: 0.4 ML, 1X/DAY
     Route: 030
     Dates: start: 20180221, end: 20180717

REACTIONS (3)
  - Nausea [Recovered/Resolved]
  - Vomiting [Recovered/Resolved]
  - Rash erythematous [Recovered/Resolved]

NARRATIVE: CASE EVENT DATE: 20180708
